FAERS Safety Report 10149988 (Version 1)
Quarter: 2014Q2

REPORT INFORMATION
  Report Type: Spontaneous
  Country: US (occurrence: US)
  Receive Date: 20140502
  Receipt Date: 20140502
  Transmission Date: 20141212
  Serious: Yes (Hospitalization, Other)
  Sender: FDA-Public Use
  Company Number: US-MERCK-1405USA000133

PATIENT
  Age: 46 Year
  Sex: Female

DRUGS (4)
  1. JANUVIA [Suspect]
     Indication: TYPE 2 DIABETES MELLITUS
     Dosage: 100 MG/ DAILY
     Route: 048
     Dates: start: 20120724, end: 2014
  2. METFORMIN [Concomitant]
  3. ONGLYZA [Concomitant]
  4. BARACLUDE [Concomitant]

REACTIONS (4)
  - Pancreatic carcinoma metastatic [Unknown]
  - Surgery [Unknown]
  - Metastases to liver [Unknown]
  - Weight decreased [Unknown]
